FAERS Safety Report 7838412-6 (Version None)
Quarter: 2011Q4

REPORT INFORMATION
  Report Type: 
  Country: None (occurrence: None)
  Receive Date: 20111024
  Receipt Date: 20111021
  Transmission Date: 20120403
  Serious: Yes (Hospitalization)
  Sender: FDA-Public Use
  Company Number: FI-MERCK-1110FIN00011

PATIENT
  Age: 76 Year
  Sex: Male
  Weight: 79 kg

DRUGS (8)
  1. ENTACAPONE [Suspect]
     Indication: PARKINSON'S DISEASE
     Route: 048
     Dates: start: 20090306
  2. ASPIRIN AND DIPYRIDAMOLE [Concomitant]
     Route: 048
     Dates: start: 20090306
  3. HYDROXOCOBALAMIN ACETATE [Concomitant]
     Indication: PERNICIOUS ANAEMIA
     Route: 030
     Dates: start: 20100215
  4. JANUVIA [Suspect]
     Indication: DIABETES MELLITUS
     Route: 048
     Dates: start: 20110217, end: 20110516
  5. CARBIDOPA AND LEVODOPA [Suspect]
     Indication: PARKINSON'S DISEASE
     Route: 048
     Dates: start: 20060306
  6. ROPINIROLE HYDROCHLORIDE [Suspect]
     Indication: PARKINSON'S DISEASE
     Route: 048
     Dates: start: 20091130
  7. CARBIDOPA AND LEVODOPA [Suspect]
     Route: 048
     Dates: start: 20060306
  8. BENSERAZIDE HYDROCHLORIDE AND LEVODOPA [Suspect]
     Indication: PARKINSON'S DISEASE
     Route: 048
     Dates: start: 20090901

REACTIONS (6)
  - FALL [None]
  - VOMITING [None]
  - NAUSEA [None]
  - WEIGHT DECREASED [None]
  - DRUG INTERACTION [None]
  - OEDEMA [None]
